FAERS Safety Report 7875744-X (Version None)
Quarter: 2011Q4

REPORT INFORMATION
  Report Type: 
  Country: None (occurrence: None)
  Receive Date: 20111031
  Receipt Date: 20110808
  Transmission Date: 20120403
  Serious: No
  Sender: FDA-Public Use
  Company Number: US-COVIDIEN/TYCO HEALTHCARE/MALLINCKRODT-T201101552

PATIENT
  Age: 26 Year
  Sex: Female

DRUGS (3)
  1. FENTANYL CITRATE [Suspect]
  2. DILAUDID [Suspect]
  3. VICODIN [Suspect]

REACTIONS (3)
  - ACTIVITIES OF DAILY LIVING IMPAIRED [None]
  - WITHDRAWAL SYNDROME [None]
  - STUPOR [None]
